FAERS Safety Report 9146789 (Version 1)
Quarter: 2013Q1

REPORT INFORMATION
  Report Type: Spontaneous
  Country: US (occurrence: None)
  Receive Date: 20130207
  Receipt Date: 20130207
  Transmission Date: 20140127
  Serious: Yes (Death)
  Sender: FDA-Public Use
  Company Number: 2013020095

PATIENT
  Age: 49 Year
  Sex: Female

DRUGS (6)
  1. ZOLPIDEM [Suspect]
     Route: 048
  2. CARISOPRODOL [Suspect]
     Route: 048
  3. OXYCODONE (OXYCODONE) [Suspect]
     Route: 048
  4. ALPRAZOLAM (ALPRAZOLAM) [Suspect]
     Route: 048
  5. MIRTAZAPINE (MIRTAZAPINE) [Suspect]
     Route: 048
  6. PROMETHAZINE [Suspect]

REACTIONS (1)
  - Drug abuse [None]
